FAERS Safety Report 7970298-1 (Version None)
Quarter: 2011Q4

REPORT INFORMATION
  Report Type: 
  Country: None (occurrence: None)
  Receive Date: 20111212
  Receipt Date: 20111027
  Transmission Date: 20120403
  Serious: Yes (Hospitalization, Other)
  Sender: FDA-Public Use
  Company Number: US-BAYER-2011-070055

PATIENT
  Age: 38 Year
  Sex: Female
  Weight: 81.633 kg

DRUGS (7)
  1. HYDROCHLOROTHIAZIDE [Concomitant]
     Dosage: UNK UNK, QD
     Route: 048
  2. DROSPIRENONE AND ETHINYL ESTRADIOL [Suspect]
     Dosage: UNK
     Route: 048
     Dates: start: 20100601
  3. MOTRIN [Concomitant]
     Dosage: 200 MG, PRN
     Route: 048
  4. POTASSIUM ACETATE [Concomitant]
     Dosage: UNK UNK, QD
     Route: 048
     Dates: start: 20010101
  5. LISINOPRIL [Concomitant]
     Indication: HYPERTENSION
     Dosage: 10 MG, QD
     Route: 048
     Dates: start: 20010101
  6. YAZ [Suspect]
     Indication: ORAL CONTRACEPTION
     Dosage: UNK
     Route: 048
     Dates: start: 20080801, end: 20100601
  7. ACIPHEX [Concomitant]
     Dosage: 20 MG, BID
     Route: 048
     Dates: start: 20010101

REACTIONS (5)
  - CHOLECYSTECTOMY [None]
  - CHEST PAIN [None]
  - MENTAL DISORDER [None]
  - CHOLECYSTITIS ACUTE [None]
  - DIARRHOEA [None]
